FAERS Safety Report 6769511-8 (Version None)
Quarter: 2010Q2

REPORT INFORMATION
  Report Type: 
  Country: None (occurrence: None)
  Receive Date: 20100608
  Receipt Date: 20100423
  Transmission Date: 20101027
  Serious: Yes (Other)
  Sender: FDA-Public Use
  Company Number: 2010SP023728

PATIENT
  Age: 23 Year
  Sex: Female

DRUGS (2)
  1. IMPLANON [Suspect]
     Indication: CONTRACEPTION
     Dosage: SC
     Route: 058
     Dates: start: 20091229, end: 20100413
  2. IMPLANON [Suspect]

REACTIONS (2)
  - IMPLANT SITE INFLAMMATION [None]
  - PAIN [None]
